FAERS Safety Report 15204380 (Version 1)
Quarter: 2018Q3

REPORT INFORMATION
  Report Type: Report from Study
  Country: BR (occurrence: BR)
  Receive Date: 20180726
  Receipt Date: 20180726
  Transmission Date: 20181010
  Serious: Yes (Hospitalization, Other)
  Sender: FDA-Public Use
  Company Number: PHHY2017BR185535

PATIENT
  Sex: Male
  Weight: 78 kg

DRUGS (2)
  1. COSENTYX [Suspect]
     Active Substance: SECUKINUMAB
     Indication: PSORIASIS
     Dosage: 150 MG, UNK
     Route: 058
     Dates: start: 201804
  2. COSENTYX [Suspect]
     Active Substance: SECUKINUMAB
     Indication: PSORIATIC ARTHROPATHY
     Dosage: 300 MG, UNK
     Route: 058

REACTIONS (6)
  - Autoimmune disorder [Unknown]
  - Impaired healing [Unknown]
  - Infection [Unknown]
  - Varicella [Unknown]
  - Decreased immune responsiveness [Unknown]
  - Pelvic pain [Not Recovered/Not Resolved]
